FAERS Safety Report 14820233 (Version 2)
Quarter: 2018Q2

REPORT INFORMATION
  Report Type: Report from Study
  Country: US (occurrence: US)
  Receive Date: 20180427
  Receipt Date: 20180511
  Transmission Date: 20180711
  Serious: Yes (Hospitalization)
  Sender: FDA-Public Use
  Company Number: PHHY2018US071145

PATIENT
  Age: 60 Year
  Sex: Female
  Weight: 85.2 kg

DRUGS (4)
  1. DOXYCYCLINE HYCLATE. [Concomitant]
     Active Substance: DOXYCYCLINE HYCLATE
     Indication: BACTERIAL INFECTION
     Dosage: 100 MG, BID
     Route: 048
     Dates: start: 20180418, end: 20180426
  2. GILENYA [Suspect]
     Active Substance: FINGOLIMOD HYDROCHLORIDE
     Indication: MULTIPLE SCLEROSIS
     Dosage: 0.5 MG, UNK (MONDAY THROUGH FRIDAY )
     Route: 048
     Dates: start: 20170214, end: 20180418
  3. METRONIDAZOL [Concomitant]
     Active Substance: METRONIDAZOLE
     Indication: INFECTION
     Dosage: 500 MG, Q8H (FOR 22 DOSES)
     Route: 065
     Dates: start: 20180418, end: 20180425
  4. FINGOLIMOD HYDROCHLORIDE [Concomitant]
     Active Substance: FINGOLIMOD HYDROCHLORIDE
     Indication: MULTIPLE SCLEROSIS
     Dosage: 0.5 MG, QD
     Route: 065
     Dates: start: 20170214, end: 20180418

REACTIONS (4)
  - Lymphocyte count decreased [Unknown]
  - Cellulitis pasteurella [Recovered/Resolved]
  - Animal bite [Recovered/Resolved]
  - Prescribed underdose [Unknown]

NARRATIVE: CASE EVENT DATE: 20180416
